FAERS Safety Report 6753081-4 (Version None)
Quarter: 2010Q2

REPORT INFORMATION
  Report Type: 
  Country: None (occurrence: None)
  Receive Date: 20100602
  Receipt Date: 20100602
  Transmission Date: 20101027
  Serious: Yes (Disabling)
  Sender: FDA-Public Use
  Company Number: None

PATIENT
  Age: 35 Year
  Sex: Female

DRUGS (1)
  1. PROLIXIN [Suspect]
     Indication: BACK PAIN
     Dosage: PILL DAILY ORAL
     Dates: start: 19740101, end: 19790101

REACTIONS (1)
  - MOVEMENT DISORDER [None]
